FAERS Safety Report 23704018 (Version 2)
Quarter: 2024Q2

REPORT INFORMATION
  Report Type: Spontaneous
  Country: US (occurrence: US)
  Receive Date: 20240403
  Receipt Date: 20240409
  Transmission Date: 20240716
  Serious: No
  Sender: FDA-Public Use
  Company Number: US-AMGEN-USASP2024067377

PATIENT
  Age: 6 Year
  Sex: Female

DRUGS (4)
  1. NPLATE [Suspect]
     Active Substance: ROMIPLOSTIM
     Indication: Immune thrombocytopenia
     Dosage: 5.5 MICROGRAM/KILOGRAM
     Route: 065
     Dates: start: 202307, end: 2024
  2. NPLATE [Suspect]
     Active Substance: ROMIPLOSTIM
     Dosage: 6.5 MICROGRAM/KILOGRAM
     Route: 065
     Dates: start: 2024, end: 2024
  3. NPLATE [Suspect]
     Active Substance: ROMIPLOSTIM
     Dosage: 7.5 MICROGRAM/KILOGRAM
     Route: 065
     Dates: start: 2024, end: 2024
  4. NPLATE [Suspect]
     Active Substance: ROMIPLOSTIM
     Dosage: 8.5 MICROGRAM/KILOGRAM
     Route: 065
     Dates: start: 20240403

REACTIONS (2)
  - Platelet count decreased [Unknown]
  - Therapeutic product effect decreased [Unknown]

NARRATIVE: CASE EVENT DATE: 20240101
